FAERS Safety Report 18919726 (Version 6)
Quarter: 2021Q3

REPORT INFORMATION
  Report Type: Spontaneous
  Country: JP (occurrence: JP)
  Receive Date: 20210221
  Receipt Date: 20210811
  Transmission Date: 20211014
  Serious: Yes (Hospitalization, Other)
  Sender: FDA-Public Use
  Company Number: JP-009507513-2102JPN001791J

PATIENT
  Age: 68 Year
  Sex: Female
  Weight: 52 kg

DRUGS (12)
  1. VANCOMYCIN HYDROCHLORIDE. [Concomitant]
     Active Substance: VANCOMYCIN HYDROCHLORIDE
     Indication: STAPHYLOCOCCAL INFECTION
     Dosage: 1.25 GRAM, BID
     Route: 065
     Dates: start: 20201217, end: 20210116
  2. EPINASTINE [EPINASTINE HYDROCHLORIDE] [Concomitant]
     Indication: ECZEMA
     Dosage: 60 MILLIGRAM, BID
     Route: 048
     Dates: start: 20210102
  3. ALOSENN [SENNOSIDE A+B] [Concomitant]
     Indication: CONSTIPATION
     Dosage: 0.5 GRAM, TID
     Route: 048
  4. CUBICIN [Suspect]
     Active Substance: DAPTOMYCIN
     Indication: STAPHYLOCOCCAL INFECTION
     Dosage: 350 MILLIGRAM, QD
     Route: 041
     Dates: start: 20210119, end: 20210211
  5. ATORVASTATIN [ATORVASTATIN CALCIUM TRIHYDRATE] [Concomitant]
     Active Substance: ATORVASTATIN CALCIUM TRIHYDRATE
     Indication: HYPERLIPIDAEMIA
     Dosage: 10 MILLIGRAM, QD
     Route: 048
  6. AMITIZA [Concomitant]
     Active Substance: LUBIPROSTONE
     Indication: CONSTIPATION
     Dosage: 24 MICROGRAM, QD
     Route: 048
     Dates: start: 20201224, end: 20210209
  7. XARELTO [Concomitant]
     Active Substance: RIVAROXABAN
     Indication: DEEP VEIN THROMBOSIS
     Dosage: 10 MILLIGRAM, QD
     Route: 048
  8. AMLODIPINE [AMLODIPINE BESILATE] [Concomitant]
     Active Substance: AMLODIPINE BESYLATE
     Indication: HYPERTENSION
     Dosage: 0.25 MILLIGRAM, QD
     Route: 048
  9. CUBICIN [Suspect]
     Active Substance: DAPTOMYCIN
     Indication: DEVICE RELATED INFECTION
  10. ANTEBATE [Concomitant]
     Active Substance: BETAMETHASONE DIPROPIONATE
     Dosage: UNK
     Route: 051
  11. BELSOMRA [Concomitant]
     Active Substance: SUVOREXANT
     Indication: INSOMNIA
     Dosage: 15 MILLIGRAM, QD
     Route: 048
     Dates: start: 20201225
  12. DIFLAL [Concomitant]
     Dosage: UNK
     Route: 051

REACTIONS (3)
  - Eosinophilic pneumonia [Recovering/Resolving]
  - Hypokalaemia [Recovered/Resolved]
  - Adrenal insufficiency [Recovering/Resolving]

NARRATIVE: CASE EVENT DATE: 20210127
